FAERS Safety Report 13427547 (Version 3)
Quarter: 2017Q2

REPORT INFORMATION
  Report Type: Spontaneous
  Country: JP (occurrence: JP)
  Receive Date: 20170411
  Receipt Date: 20170428
  Transmission Date: 20170830
  Serious: Yes (Hospitalization)
  Sender: FDA-Public Use
  Company Number: JP-GLAXOSMITHKLINE-JP2017JPN048896

PATIENT
  Age: 91 Year
  Sex: Female

DRUGS (9)
  1. PRANLUKAST TABLET [Concomitant]
     Dosage: 1 DF, 1D
  2. LUPRAC [Concomitant]
     Active Substance: TORSEMIDE
     Dosage: 2 MG, 1D
  3. HOKUNALIN TAPE [Concomitant]
     Active Substance: TULOBUTEROL
     Indication: ASTHMA
     Dosage: UNK, PRN
     Dates: end: 20170405
  4. FAMOTIDINE. [Concomitant]
     Active Substance: FAMOTIDINE
     Dosage: 10 MG, 1D
  5. ZYLORIC [Concomitant]
     Active Substance: ALLOPURINOL
     Dosage: 1 DF, 1D
  6. NICERGOLINE [Concomitant]
     Active Substance: NICERGOLINE
     Dosage: 5 MG, 1D
  7. FRANDOL [Concomitant]
     Active Substance: ISOSORBIDE DINITRATE
     Dosage: 20 MG, 1D
  8. REBAMIPIDE [Concomitant]
     Active Substance: REBAMIPIDE
     Dosage: 30 MG, 1D
  9. RELVAR ELLIPTA [Suspect]
     Active Substance: FLUTICASONE FUROATE\VILANTEROL TRIFENATATE
     Indication: ASTHMA
     Dosage: UNK, QD
     Route: 055
     Dates: start: 20150501

REACTIONS (3)
  - Viral upper respiratory tract infection [Unknown]
  - Prescribed overdose [Unknown]
  - Asthma [Recovering/Resolving]

NARRATIVE: CASE EVENT DATE: 20170405
